FAERS Safety Report 6801306-9 (Version None)
Quarter: 2010Q2

REPORT INFORMATION
  Report Type: 
  Country: None (occurrence: None)
  Receive Date: 20100629
  Receipt Date: 20100618
  Transmission Date: 20101027
  Serious: Yes (Other)
  Sender: FDA-Public Use
  Company Number: US-ROCHE-690010

PATIENT
  Sex: Female
  Weight: 59 kg

DRUGS (2)
  1. PEGASYS [Suspect]
     Dosage: FORM: PRE-FILLED SYRINGE
     Route: 058
     Dates: start: 20090918
  2. RIBASPHERE [Suspect]
     Indication: HEPATITIS C
     Route: 048
     Dates: start: 20090918

REACTIONS (12)
  - AUTOIMMUNE DISORDER [None]
  - DIZZINESS [None]
  - DRY SKIN [None]
  - EYELID EXFOLIATION [None]
  - HEADACHE [None]
  - LATENT TUBERCULOSIS [None]
  - LYMPHADENOPATHY [None]
  - PRURITUS [None]
  - PYREXIA [None]
  - RESPIRATORY DISORDER [None]
  - VISION BLURRED [None]
  - VOMITING [None]
